FAERS Safety Report 8570177-5 (Version None)
Quarter: 2012Q3

REPORT INFORMATION
  Report Type: 
  Country: None (occurrence: None)
  Receive Date: 20120803
  Receipt Date: 20120702
  Transmission Date: 20120928
  Serious: Yes (Life-Threatening, Other)
  Sender: FDA-Public Use
  Company Number: DE-PFIZER INC-2012187767

PATIENT
  Age: 79 Year
  Sex: Female

DRUGS (11)
  1. RAMIPRIL [Interacting]
     Dosage: 2.5 MG, UNK
     Route: 065
     Dates: start: 20120429, end: 20120616
  2. XARELTO [Concomitant]
     Dosage: 20 MG, 1X/DAY
     Dates: end: 20120618
  3. SPIRONOLACTONE [Interacting]
     Indication: PULMONARY ARTERIAL HYPERTENSION
     Dosage: 10MG 10MG- 5MG-0MG DAILY
     Dates: start: 20120608, end: 20120616
  4. ALLOPURINOL [Concomitant]
     Dosage: 150 MG, 1X/DAY
     Dates: end: 20120617
  5. AMIODARONE HCL [Interacting]
     Indication: ATRIAL FIBRILLATION
     Dosage: 3X20MG, 1X/DAY
     Route: 048
     Dates: start: 20120608, end: 20120615
  6. TORASEMIDE [Concomitant]
     Dosage: ^2,5 MG/DAY^
     Dates: end: 20120601
  7. LITHIUM CARBONATE [Suspect]
     Dosage: 600 MG, 1X/DAY
     Route: 048
     Dates: start: 19690101, end: 20120618
  8. BISOPROLOL [Concomitant]
     Dosage: 2 MG, 2X/DAY
     Dates: end: 20120601
  9. DARIFENACIN [Concomitant]
     Dosage: 7.5 MG, 1X/DAY
     Dates: end: 20120616
  10. HYDROCHLOROTHIAZIDE [Concomitant]
     Dosage: UNK
     Dates: end: 20120617
  11. LEVOTHYROXINE SODIUM [Concomitant]
     Dosage: 50 UG, 1X/DAY
     Dates: end: 20120601

REACTIONS (16)
  - PULMONARY HYPERTENSION [None]
  - TREMOR [None]
  - SOMNOLENCE [None]
  - DIARRHOEA [None]
  - PANIC ATTACK [None]
  - HYPONATRAEMIA [None]
  - DRUG INTERACTION [None]
  - TOXICITY TO VARIOUS AGENTS [None]
  - FATIGUE [None]
  - VOMITING [None]
  - NAUSEA [None]
  - RENAL FAILURE [None]
  - APHASIA [None]
  - ATAXIA [None]
  - COORDINATION ABNORMAL [None]
  - INCONTINENCE [None]
